FAERS Safety Report 5875581-1 (Version None)
Quarter: 2008Q3

REPORT INFORMATION
  Report Type: 
  Country: None (occurrence: None)
  Receive Date: 20080909
  Receipt Date: 20080826
  Transmission Date: 20090109
  Serious: Yes (Hospitalization, Other)
  Sender: FDA-Public Use
  Company Number: US-ELI_LILLY_AND_COMPANY-US200808005548

PATIENT
  Sex: Male
  Weight: 129 kg

DRUGS (7)
  1. BYETTA [Suspect]
     Indication: TYPE 2 DIABETES MELLITUS
     Dosage: 5 UG, 2/D
     Route: 058
     Dates: start: 20060101
  2. BYETTA [Suspect]
     Dosage: 10 UG, 2/D
     Route: 058
     Dates: end: 20080824
  3. TRICOR [Concomitant]
     Dosage: UNK, DAILY (1/D)
     Route: 065
  4. LANTUS [Concomitant]
     Dosage: 10 U, EACH EVENING
     Route: 065
     Dates: end: 20080401
  5. LANTUS [Concomitant]
     Dosage: 20 U, EACH EVENING
     Route: 065
     Dates: start: 20080401
  6. METFORMIN [Concomitant]
     Dosage: 1000 MG, 2/D
     Route: 065
  7. GLYBURIDE [Concomitant]
     Dosage: UNK, 2/D
     Route: 065

REACTIONS (4)
  - ABDOMINAL PAIN UPPER [None]
  - GASTROOESOPHAGEAL REFLUX DISEASE [None]
  - PANCREATITIS [None]
  - WEIGHT DECREASED [None]
